FAERS Safety Report 4575502-8 (Version None)
Quarter: 2005Q1

REPORT INFORMATION
  Report Type: 
  Country: None (occurrence: None)
  Receive Date: 20050128
  Receipt Date: 20050128
  Transmission Date: 20050727
  Serious: Yes (Hospitalization)
  Sender: FDA-Public Use
  Company Number: None

PATIENT
  Sex: Female
  Weight: 104 kg

DRUGS (8)
  1. DOXORUBICIN    60MG/M2 [Suspect]
     Dosage: 130MG   Q14DAYS   INTRAVENOU
     Route: 042
     Dates: start: 20041108, end: 20050103
  2. CYCLOPHOSPHAMIDE [Suspect]
     Dosage: 1260   Q14DAYS    INTRAVENOU
     Route: 042
     Dates: start: 20041108, end: 20050103
  3. ZOFRAN [Concomitant]
  4. COMPAZINE [Concomitant]
  5. DECADRON [Concomitant]
  6. AMBIEN [Concomitant]
  7. EFFEXOR [Concomitant]
  8. DEPAKOTE [Concomitant]

REACTIONS (4)
  - HEADACHE [None]
  - NAUSEA [None]
  - NEUTROPENIA [None]
  - VOMITING [None]
